FAERS Safety Report 7617033-4 (Version None)
Quarter: 2011Q3

REPORT INFORMATION
  Report Type: 
  Country: None (occurrence: None)
  Receive Date: 20110718
  Receipt Date: 20091114
  Transmission Date: 20111222
  Serious: Yes (Hospitalization, Other)
  Sender: FDA-Public Use
  Company Number: US-BAYER-200939430NA

PATIENT
  Age: 24 Year
  Sex: Male
  Weight: 83 kg

DRUGS (22)
  1. LASIX [Concomitant]
     Dosage: 80 MG, BID
     Route: 048
  2. FUROSEMIDE [Concomitant]
     Dosage: 100 MG, UNK
     Route: 042
     Dates: start: 20030731
  3. ANCEF [Concomitant]
     Dosage: 1000 MG, UNK
     Route: 042
     Dates: start: 20030731
  4. PLATELETS [Concomitant]
     Dosage: 198 ML, UNK
     Route: 042
     Dates: start: 20030731
  5. LABETALOL HCL [Concomitant]
     Dosage: 200 MG, BID
     Route: 048
  6. PROCARDIA [Concomitant]
     Dosage: 90 MG, UNK
     Route: 048
  7. PROTAMINE SULFATE [Concomitant]
     Dosage: 350 MG, UNK
     Route: 042
     Dates: start: 20030731
  8. TRASYLOL [Suspect]
     Indication: PRODUCT USED FOR UNKNOWN INDICATION
     Dosage: 1 ML, TEST DOSE, 100 ML LOADING DOSE
     Route: 042
     Dates: start: 20030731, end: 20030731
  9. CELLCEPT [Concomitant]
     Dosage: 750 MG, BID
  10. CLONIDINE [Concomitant]
     Dosage: 0.2 MG, TID IF NEEDED
  11. VERAPAMIL [Concomitant]
     Dosage: 7.5 MG, UNK
     Route: 042
     Dates: start: 20030731
  12. PROGRAF [Concomitant]
     Dosage: 6 MG, BID
  13. MINOXIDIL [Concomitant]
     Dosage: 5 MG, BID
     Route: 048
  14. NORVASC [Concomitant]
     Dosage: 5 MG, BID
     Route: 048
  15. LOPRESSOR [Concomitant]
     Dosage: 100 MG, BID
     Route: 048
  16. FRESH FROZEN PLASMA [Concomitant]
     Dosage: 460 ML, UNK
     Route: 042
     Dates: start: 20030731
  17. AMIODARONE HCL [Concomitant]
     Dosage: 312.88 MG, UNK
     Route: 042
     Dates: start: 20030731
  18. ACETYLSALICYLIC ACID SRT [Concomitant]
     Dosage: 325 MG, UNK
     Route: 048
  19. FENTANYL-100 [Concomitant]
     Dosage: 2250 MG, UNK
     Route: 042
     Dates: start: 20030731
  20. VANCOMYCIN [Concomitant]
     Dosage: 500 MG, UNK
     Route: 042
     Dates: start: 20030731
  21. MILRINONE [Concomitant]
     Dosage: 4 MG, UNK
     Dates: start: 20030731
  22. RED BLOOD CELLS [Concomitant]
     Dosage: 500 ML, UNK
     Route: 042
     Dates: start: 20030731

REACTIONS (12)
  - UNEVALUABLE EVENT [None]
  - PAIN [None]
  - RENAL DISORDER [None]
  - RENAL FAILURE [None]
  - RENAL IMPAIRMENT [None]
  - STRESS [None]
  - RENAL INJURY [None]
  - INJURY [None]
  - ANHEDONIA [None]
  - EMOTIONAL DISTRESS [None]
  - ANXIETY [None]
  - FEAR [None]
